FAERS Safety Report 24209446 (Version 1)
Quarter: 2024Q3

REPORT INFORMATION
  Report Type: Spontaneous
  Country: JP (occurrence: JP)
  Receive Date: 20240814
  Receipt Date: 20240814
  Transmission Date: 20241017
  Serious: Yes (Other)
  Sender: RANBAXY
  Company Number: JP-SUN PHARMACEUTICAL INDUSTRIES LTD-2024RR-462551

PATIENT
  Age: 15 Year
  Sex: Female
  Weight: 42.9 kg

DRUGS (3)
  1. ATOMOXETINE [Suspect]
     Active Substance: ATOMOXETINE HYDROCHLORIDE
     Indication: Pain
     Dosage: 50 MILLIGRAM, DAILY
     Route: 065
  2. METHYLPHENIDATE [Suspect]
     Active Substance: METHYLPHENIDATE
     Indication: Pain
     Dosage: 18 MILLIGRAM, DAILY
     Route: 065
  3. GUANFACINE [Suspect]
     Active Substance: GUANFACINE
     Indication: Blood pressure management
     Dosage: 3 MILLIGRAM, DAILY
     Route: 065

REACTIONS (8)
  - Headache [Unknown]
  - Constipation [Unknown]
  - Dry mouth [Unknown]
  - Hypertension [Unknown]
  - Tachycardia [Unknown]
  - Hypotension [Unknown]
  - Lethargy [Unknown]
  - Somnolence [Unknown]
